FAERS Safety Report 14691656 (Version 7)
Quarter: 2019Q4

REPORT INFORMATION
  Report Type: Report from Study
  Country: GB (occurrence: GB)
  Receive Date: 20180329
  Receipt Date: 20191113
  Transmission Date: 20200122
  Serious: Yes (Hospitalization)
  Sender: FDA-Public Use
  Company Number: GB-UCBSA-2017050410

PATIENT
  Sex: Female

DRUGS (3)
  1. CIMZIA [Suspect]
     Active Substance: CERTOLIZUMAB PEGOL
     Indication: AXIAL SPONDYLOARTHRITIS
     Dosage: 200 MG, EV 2 WEEKS(QOW)
     Route: 058
     Dates: start: 201804, end: 2018
  2. CERTOLIZUMAB PEGOL ASP AUTOCLICKS [Suspect]
     Active Substance: CERTOLIZUMAB PEGOL
     Indication: AXIAL SPONDYLOARTHRITIS
     Dosage: 400 MG, EV 2 WEEKS(QOW)
     Route: 058
     Dates: start: 20171120, end: 2017
  3. CERTOLIZUMAB PEGOL ASP AUTOCLICKS [Suspect]
     Active Substance: CERTOLIZUMAB PEGOL
     Dosage: 200 MG, EV 2 WEEKS(QOW)
     Route: 058
     Dates: end: 2018

REACTIONS (6)
  - Injection site discolouration [Unknown]
  - Headache [Recovered/Resolved]
  - Influenza [Recovered/Resolved]
  - Maternal exposure before pregnancy [Unknown]
  - Ill-defined disorder [Unknown]
  - Renal disorder [Unknown]

NARRATIVE: CASE EVENT DATE: 2017
